FAERS Safety Report 23110723 (Version 1)
Quarter: 2023Q4

REPORT INFORMATION
  Report Type: Spontaneous
  Country: GB (occurrence: GB)
  Receive Date: 20231026
  Receipt Date: 20231026
  Transmission Date: 20240110
  Serious: Yes (Disabling, Congenital Anomaly, Other)
  Sender: FDA-Public Use
  Company Number: GB-MHRA-MED-202304060826264400-QPGDV

PATIENT
  Age: 33 Year
  Sex: Male
  Weight: 100 kg

DRUGS (8)
  1. CIPROFLOXACIN [Suspect]
     Active Substance: CIPROFLOXACIN
     Indication: Epididymitis
     Dosage: UNK
     Route: 065
  2. ALFUZOSIN [Concomitant]
     Active Substance: ALFUZOSIN
     Indication: Adverse drug reaction
     Dosage: UNK
     Route: 065
  3. DULOXETINE [Concomitant]
     Active Substance: DULOXETINE
     Indication: Adverse drug reaction
     Dosage: UNK
     Route: 065
  4. GENERICS UK NAPROXEN ENTERIC COATED [Concomitant]
     Indication: Adverse drug reaction
     Dosage: UNK
     Route: 065
  5. LANSOPRAZOLE [Concomitant]
     Active Substance: LANSOPRAZOLE
     Indication: Adverse drug reaction
     Dosage: UNK
     Route: 065
  6. MORPHINE SULFATE [Concomitant]
     Active Substance: MORPHINE SULFATE
     Indication: Pain
     Dosage: UNK
     Route: 065
  7. ACETAMINOPHEN [Concomitant]
     Active Substance: ACETAMINOPHEN
     Indication: Pain
     Dosage: UNK
     Route: 065
  8. PREGABALIN [Concomitant]
     Active Substance: PREGABALIN
     Indication: Pain
     Dosage: UNK
     Route: 065

REACTIONS (7)
  - Medication error [Unknown]
  - Tendonitis [Not Recovered/Not Resolved]
  - Amnesia [Not Recovered/Not Resolved]
  - Insomnia [Not Recovered/Not Resolved]
  - Fatigue [Not Recovered/Not Resolved]
  - Neuropathy peripheral [Not Recovered/Not Resolved]
  - Infertility [Not Recovered/Not Resolved]
